APPROVED DRUG PRODUCT: OXALIPLATIN
Active Ingredient: OXALIPLATIN
Strength: 50MG/10ML (5MG/ML)
Dosage Form/Route: INJECTABLE;INTRAVENOUS
Application: A207325 | Product #001 | TE Code: AP
Applicant: GLAND PHARMA LTD
Approved: Feb 10, 2017 | RLD: No | RS: Yes | Type: RX